FAERS Safety Report 10732595 (Version 2)
Quarter: 2015Q1

REPORT INFORMATION
  Report Type: Spontaneous
  Country: CA (occurrence: None)
  Receive Date: 20150120
  Receipt Date: 20150303
  Transmission Date: 20150721
  Serious: Yes (Hospitalization)
  Sender: FDA-Public Use
  Company Number: 2015-10199

PATIENT
  Age: 87 Year
  Sex: Male

DRUGS (13)
  1. AMIODARONE [Concomitant]
     Active Substance: AMIODARONE
  2. ACEBUTOLOL [Concomitant]
     Active Substance: ACEBUTOLOL
  3. ASCORBIC ACID W/BETACAROTENE/COPPER(ASCORBIC ACID, BETACAROTENE, COPPER, RIBOFLAVIN, SELENIUM, TOCOFERSOLAN, ZINC) [Concomitant]
  4. CALCIUM [Concomitant]
     Active Substance: CALCIUM
  5. ACIDOPHILUS (LACTOBACILLUS ACIDOPHILUS) [Concomitant]
  6. EYLEA [Suspect]
     Active Substance: AFLIBERCEPT
     Indication: NEOVASCULAR AGE-RELATED MACULAR DEGENERATION
     Dosage: MONTHLY X 3 DOSES AND EVERY OTHER MONTH, INTRAOCULAR
     Route: 031
     Dates: start: 20140708
  7. AMLODIPINE [Concomitant]
     Active Substance: AMLODIPINE BESYLATE
  8. DIOVAN [Concomitant]
     Active Substance: VALSARTAN
  9. LEVOCARB (CARBIDOPA, LEVODOPA) [Concomitant]
  10. VITAMINS NOS [Concomitant]
     Active Substance: VITAMINS
  11. VITAMIN D (COLECALCIFEROL) [Concomitant]
  12. ATORVASTATIN [Concomitant]
     Active Substance: ATORVASTATIN
  13. ENTROPHEN (ACETYLSALICYLIC ACID) [Concomitant]

REACTIONS (2)
  - Peripheral ischaemia [None]
  - Peripheral embolism [None]

NARRATIVE: CASE EVENT DATE: 20141129
